FAERS Safety Report 9834231 (Version 1)
Quarter: 2014Q1

REPORT INFORMATION
  Report Type: Spontaneous
  Country: FR (occurrence: FR)
  Receive Date: 20140122
  Receipt Date: 20140122
  Transmission Date: 20141002
  Serious: Yes (Hospitalization)
  Sender: FDA-Public Use
  Company Number: FR-BRISTOL-MYERS SQUIBB COMPANY-20032579

PATIENT
  Age: 62 Year
  Sex: Female

DRUGS (9)
  1. BARACLUDE TABS 0.5 MG [Suspect]
     Route: 048
     Dates: start: 2005, end: 20070715
  2. MABTHERA [Suspect]
     Indication: MUSCULOSKELETAL PAIN
     Dosage: 03JUL2007
     Dates: start: 20070618, end: 20070715
  3. TERCIAN [Suspect]
     Route: 048
     Dates: end: 20070715
  4. NOCTRAN [Suspect]
     Route: 048
     Dates: end: 20070715
  5. SEROPLEX [Suspect]
     Route: 048
     Dates: end: 20070715
  6. DUROGESIC [Suspect]
     Dosage: 1DF: 50MCG/HOUR
     Route: 062
     Dates: end: 20070715
  7. DULCOLAX [Concomitant]
     Dosage: 1DF: 1SUPPOSITORY
  8. PREVISCAN [Concomitant]
     Dosage: 1DF: 0.5 UNIT NOS
  9. AERIUS [Concomitant]

REACTIONS (1)
  - Pancreatitis [Recovered/Resolved]
